FAERS Safety Report 6828579-0 (Version None)
Quarter: 2010Q3

REPORT INFORMATION
  Report Type: 
  Country: None (occurrence: None)
  Receive Date: 20100709
  Receipt Date: 20070212
  Transmission Date: 20110219
  Serious: No
  Sender: FDA-Public Use
  Company Number: US-PFIZER INC-2007012450

PATIENT
  Sex: Male
  Weight: 102.06 kg

DRUGS (4)
  1. CHANTIX [Suspect]
     Dates: start: 20070101
  2. GEODON [Concomitant]
  3. TEMAZEPAM [Concomitant]
  4. TEGRETOL [Concomitant]

REACTIONS (2)
  - HYPERSENSITIVITY [None]
  - RASH [None]
